FAERS Safety Report 8764030 (Version 1)
Quarter: 2012Q4

REPORT INFORMATION
  Report Type: 
  Country: CH (occurrence: CH)
  Receive Date: 20120830
  Receipt Date: 20120830
  Transmission Date: 20130627
  Serious: Yes (Death)
  Sender: FDA-Public Use
  Company Number: CH-PFIZER INC-2012213365

PATIENT
  Age: 58 Year
  Sex: Female
  Weight: 57 kg

DRUGS (12)
  1. ZOLOFT [Suspect]
     Dosage: 50 mg, 1x/day
     Route: 048
  2. ZITHROMAX [Suspect]
     Dosage: 250 mg, 2x/day
     Route: 048
  3. FERINJECT [Suspect]
     Dosage: 600 mg, 1x/day (total administration: 30 mL)
     Route: 042
     Dates: start: 20120804
  4. TOREM [Suspect]
     Dosage: 10 mg, UNK
     Route: 048
  5. MOTILIUM ^JANSSEN-CILAG^ [Suspect]
     Dosage: 10 mg, 3x/day
     Route: 048
  6. NEXIUM [Suspect]
     Dosage: 40 mg, 3x/day
     Route: 048
  7. BELOC ZOK [Concomitant]
     Dosage: 25 mg, UNK
     Route: 048
  8. DIGOXIN [Concomitant]
     Dosage: 0.25 mg, UNK
     Route: 048
  9. ALDACTONE [Concomitant]
     Dosage: 25 mg, UNK
     Route: 048
  10. MAGNESIOCARD [Concomitant]
     Dosage: 10 mmol, 1x/day
     Route: 048
  11. FLATULEX [Concomitant]
     Route: 048
  12. SPIRIVA [Concomitant]
     Dosage: 18 ug, 1x/day

REACTIONS (5)
  - Type I hypersensitivity [Fatal]
  - Dyspnoea [Fatal]
  - Bradycardia [Fatal]
  - Hypotension [Fatal]
  - Anaphylactic shock [Fatal]
